FAERS Safety Report 4662609-X (Version None)
Quarter: 2005Q2

REPORT INFORMATION
  Report Type: 
  Country: None (occurrence: None)
  Receive Date: 20050513
  Receipt Date: 20050513
  Transmission Date: 20051028
  Serious: Yes (Other)
  Sender: FDA-Public Use
  Company Number: None

PATIENT
  Age: 54 Year
  Sex: Male

DRUGS (1)
  1. ATENOLOL [Suspect]
     Dosage: 25MG  QD ORAL
     Route: 048
     Dates: start: 20041108, end: 20050106

REACTIONS (2)
  - DYSPNOEA [None]
  - SINUS BRADYCARDIA [None]
